FAERS Safety Report 8250029-0 (Version None)
Quarter: 2012Q2

REPORT INFORMATION
  Report Type: 
  Country: None (occurrence: None)
  Receive Date: 20120402
  Receipt Date: 20120319
  Transmission Date: 20120825
  Serious: Yes (Death, Hospitalization)
  Sender: FDA-Public Use
  Company Number: GR-MYLANLABS-2012S1006333

PATIENT
  Age: 74 Year
  Sex: Male

DRUGS (9)
  1. VANCOMYCIN [Suspect]
     Indication: STAPHYLOCOCCAL BACTERAEMIA
     Route: 065
  2. CORTISONE [Suspect]
     Indication: AUTOIMMUNE HEPATITIS
     Route: 065
  3. COLISTIN SULFATE [Suspect]
     Indication: ACINETOBACTER INFECTION
     Route: 065
  4. TIGECYCLINE [Suspect]
     Indication: KLEBSIELLA INFECTION
     Route: 065
  5. COLISTIN SULFATE [Suspect]
     Indication: KLEBSIELLA INFECTION
     Route: 065
  6. TIGECYCLINE [Suspect]
     Indication: ACINETOBACTER INFECTION
     Route: 065
  7. AZATHIOPRINE [Concomitant]
     Indication: AUTOIMMUNE HEPATITIS
     Route: 065
  8. GENTAMICIN [Suspect]
     Indication: STAPHYLOCOCCAL BACTERAEMIA
     Route: 065
  9. CIPROFLOXACIN [Suspect]
     Indication: STAPHYLOCOCCAL BACTERAEMIA
     Route: 065

REACTIONS (5)
  - KLEBSIELLA INFECTION [None]
  - ACINETOBACTER INFECTION [None]
  - FUNGAEMIA [None]
  - STAPHYLOCOCCAL BACTERAEMIA [None]
  - SEPTIC SHOCK [None]
